FAERS Safety Report 5149872-6 (Version None)
Quarter: 2006Q4

REPORT INFORMATION
  Report Type: 
  Country: None (occurrence: None)
  Receive Date: 20060918
  Receipt Date: 20060206
  Transmission Date: 20070319
  Serious: Yes (Hospitalization)
  Sender: FDA-Public Use
  Company Number: US-JNJFOC-20051205777

PATIENT
  Age: 4 Decade
  Sex: Male

DRUGS (1)
  1. TOPAMAX [Suspect]
     Indication: EPILEPSY
     Dosage: 400 MG, 1 IN 1 DAY
     Dates: start: 20020101

REACTIONS (1)
  - NEPHROLITHIASIS [None]
